FAERS Safety Report 5486778-7 (Version None)
Quarter: 2007Q4

REPORT INFORMATION
  Report Type: 
  Country: None (occurrence: None)
  Receive Date: 20071012
  Receipt Date: 20071012
  Transmission Date: 20080405
  Serious: No
  Sender: FDA-Public Use
  Company Number: None

PATIENT
  Age: 55 Year
  Sex: Male
  Weight: 58.514 kg

DRUGS (1)
  1. HYDROMORPHONE HCL [Suspect]
     Dosage: X1 IV
     Route: 042
     Dates: start: 20070928

REACTIONS (3)
  - HYPERHIDROSIS [None]
  - HYPOTENSION [None]
  - NAUSEA [None]
